FAERS Safety Report 15136195 (Version 1)
Quarter: 2018Q3

REPORT INFORMATION
  Report Type: Spontaneous
  Country: NO (occurrence: NO)
  Receive Date: 20180712
  Receipt Date: 20180712
  Transmission Date: 20181010
  Serious: Yes (Hospitalization)
  Sender: FDA-Public Use
  Company Number: NO-TEVA-2018-NO-924118

PATIENT
  Age: 51 Year
  Sex: Male

DRUGS (4)
  1. SOBRIL [Concomitant]
     Active Substance: OXAZEPAM
     Indication: ALCOHOL DETOXIFICATION
  2. RENITEC COMP [Interacting]
     Active Substance: ENALAPRIL MALEATE\HYDROCHLOROTHIAZIDE
     Route: 048
     Dates: start: 2015, end: 20180409
  3. ANTABUS [Suspect]
     Active Substance: DISULFIRAM
     Indication: ALCOHOL ABUSE
     Route: 048
     Dates: start: 20180406, end: 20180409
  4. HALDOL [Concomitant]
     Active Substance: HALOPERIDOL
     Indication: ALCOHOL DETOXIFICATION

REACTIONS (5)
  - Respiratory failure [Recovering/Resolving]
  - Dependence on respirator [Recovering/Resolving]
  - Laryngeal oedema [Recovering/Resolving]
  - Drug interaction [Recovering/Resolving]
  - Lip swelling [Recovering/Resolving]

NARRATIVE: CASE EVENT DATE: 20180406
